FAERS Safety Report 5356204-7 (Version None)
Quarter: 2007Q2

REPORT INFORMATION
  Report Type: 
  Country: None (occurrence: None)
  Receive Date: 20070612
  Receipt Date: 20070604
  Transmission Date: 20071010
  Serious: Yes (Other)
  Sender: FDA-Public Use
  Company Number: IE-PFIZER INC-2007046427

PATIENT
  Age: 67 Year
  Sex: Female

DRUGS (1)
  1. LIPITOR [Suspect]
     Dates: start: 20060601, end: 20070101

REACTIONS (4)
  - ARTHRALGIA [None]
  - LIVER DISORDER [None]
  - MALAISE [None]
  - PAIN IN EXTREMITY [None]
